FAERS Safety Report 10183098 (Version 7)
Quarter: 2016Q1

REPORT INFORMATION
  Report Type: Spontaneous
  Country: US (occurrence: US)
  Receive Date: 20140520
  Receipt Date: 20160311
  Transmission Date: 20160525
  Serious: Yes (Hospitalization, Disabling, Other)
  Sender: FDA-Public Use
  Company Number: US-009507513-1405USA004505

PATIENT
  Sex: Female

DRUGS (3)
  1. FOSAMAX [Suspect]
     Active Substance: ALENDRONATE SODIUM
     Indication: OSTEOPOROSIS
     Dosage: UNK, UNKNOWN
     Route: 048
     Dates: start: 19971226
  2. FOSAMAX [Suspect]
     Active Substance: ALENDRONATE SODIUM
     Dosage: 70 MG, QW
     Route: 048
     Dates: start: 20010724, end: 20040617
  3. FOSAMAX [Suspect]
     Active Substance: ALENDRONATE SODIUM
     Dosage: UNK, UNKNOWN
     Route: 048
     Dates: start: 2005

REACTIONS (22)
  - Asthenia [Unknown]
  - Oedema peripheral [Unknown]
  - Lung cancer metastatic [Unknown]
  - Impaired healing [Recovered/Resolved]
  - Ligament sprain [Recovering/Resolving]
  - Fall [Unknown]
  - Joint crepitation [Recovering/Resolving]
  - Patellofemoral pain syndrome [Recovered/Resolved]
  - Osteoarthritis [Not Recovered/Not Resolved]
  - Medical device pain [Recovered/Resolved]
  - Metastases to pelvis [Unknown]
  - Arthralgia [Unknown]
  - Weight increased [Unknown]
  - Fracture delayed union [Recovered/Resolved]
  - Metastases to bone [Unknown]
  - Joint effusion [Unknown]
  - Femoral neck fracture [Recovered/Resolved]
  - Hypertension [Not Recovered/Not Resolved]
  - Musculoskeletal pain [Unknown]
  - Lymphoedema [Unknown]
  - Femoral neck fracture [Unknown]
  - Femur fracture [Unknown]

NARRATIVE: CASE EVENT DATE: 20010724
